FAERS Safety Report 11590331 (Version 1)
Quarter: 2015Q4

REPORT INFORMATION
  Report Type: Spontaneous
  Country: US (occurrence: US)
  Receive Date: 20151002
  Receipt Date: 20151002
  Transmission Date: 20160304
  Serious: Yes (Other)
  Sender: FDA-Public Use
  Company Number: US-ELI_LILLY_AND_COMPANY-US201509008005

PATIENT
  Age: 70 Year
  Sex: Male

DRUGS (1)
  1. GEMZAR [Suspect]
     Active Substance: GEMCITABINE HYDROCHLORIDE
     Indication: PANCREATIC CARCINOMA
     Dosage: UNK
     Route: 065
     Dates: end: 20150707

REACTIONS (8)
  - Laryngitis [Unknown]
  - Headache [Unknown]
  - Insomnia [Unknown]
  - Renal impairment [Unknown]
  - Blood pressure abnormal [Unknown]
  - Ataxia [Unknown]
  - Haemolytic uraemic syndrome [Unknown]
  - Confusional state [Unknown]

NARRATIVE: CASE EVENT DATE: 20150922
